FAERS Safety Report 24000331 (Version 1)
Quarter: 2024Q2

REPORT INFORMATION
  Report Type: Spontaneous
  Country: FR (occurrence: FR)
  Receive Date: 20240621
  Receipt Date: 20240621
  Transmission Date: 20240716
  Serious: Yes (Hospitalization, Other)
  Sender: FDA-Public Use
  Company Number: FR-B.Braun Medical Inc.-2158360

PATIENT
  Age: 98 Year
  Sex: Male

DRUGS (3)
  1. METRONIDAZOLE [Suspect]
     Active Substance: METRONIDAZOLE
     Indication: Urosepsis
     Route: 042
     Dates: start: 20230718, end: 20230720
  2. SPIRAMYCIN [Suspect]
     Active Substance: SPIRAMYCIN
  3. CEFTRIAXONE [Suspect]
     Active Substance: CEFTRIAXONE\CEFTRIAXONE SODIUM

REACTIONS (1)
  - Clostridium difficile colitis [Unknown]
